FAERS Safety Report 14431046 (Version 4)
Quarter: 2018Q4

REPORT INFORMATION
  Report Type: Report from Study
  Country: DE (occurrence: DE)
  Receive Date: 20180124
  Receipt Date: 20181225
  Transmission Date: 20190204
  Serious: Yes (Death)
  Sender: FDA-Public Use
  Company Number: DE-ROCHE-2060306

PATIENT
  Age: 55 Year
  Sex: Male
  Weight: 112 kg

DRUGS (5)
  1. IBRUTINIB [Suspect]
     Active Substance: IBRUTINIB
     Indication: CHRONIC LYMPHOCYTIC LEUKAEMIA
     Dosage: ON 09/JAN/2018, HE RECEIVED THE MOST RECENT DOSE OF IBRUTINIB 420 MG PRIOR TO SECONDARY MALIGNANCY P
     Route: 048
     Dates: start: 20170725
  2. VENETOCLAX. [Suspect]
     Active Substance: VENETOCLAX
     Indication: CHRONIC LYMPHOCYTIC LEUKAEMIA
     Dosage: ESCALATING DOSE?DAY 22-28 OF CYCLE 1, EVERY DAY OF EACH SUBSEQUENT CYCLE?ON 09/JAN/2018, HE RECEIVED
     Route: 048
     Dates: start: 20170816
  3. IBUPROFEN. [Concomitant]
     Active Substance: IBUPROFEN
     Route: 048
     Dates: start: 20171115
  4. METAMIZOL [Concomitant]
     Active Substance: METAMIZOLE SODIUM
     Route: 048
     Dates: start: 20171115
  5. OBINUTUZUMAB. [Suspect]
     Active Substance: OBINUTUZUMAB
     Indication: CHRONIC LYMPHOCYTIC LEUKAEMIA
     Dosage: ON 13/DEC/2017, HE RECEIVED THE MOST RECENT DOSE OF OBINUTUZUMAB 1000 MG PRIOR TO SECONDARY MALIGNAN
     Route: 042
     Dates: start: 20170725

REACTIONS (1)
  - Prostate cancer metastatic [Fatal]

NARRATIVE: CASE EVENT DATE: 20180118
